FAERS Safety Report 24356466 (Version 1)
Quarter: 2024Q3

REPORT INFORMATION
  Report Type: Spontaneous
  Country: MX (occurrence: MX)
  Receive Date: 20240924
  Receipt Date: 20240924
  Transmission Date: 20241016
  Serious: Yes (Other)
  Sender: ROCHE
  Company Number: MX-ROCHE-10000065231

PATIENT
  Age: 66 Year
  Sex: Female
  Weight: 70 kg

DRUGS (1)
  1. RITUXIMAB [Suspect]
     Active Substance: RITUXIMAB
     Indication: Non-Hodgkin^s lymphoma
     Route: 042
     Dates: start: 202010, end: 202212

REACTIONS (15)
  - Neutrophil count decreased [Unknown]
  - Lymphocyte count increased [Unknown]
  - Red cell distribution width increased [Unknown]
  - Reticulocyte count increased [Unknown]
  - Blood bilirubin unconjugated increased [Unknown]
  - Blood alkaline phosphatase increased [Unknown]
  - Protein total decreased [Unknown]
  - Blood lactate dehydrogenase increased [Unknown]
  - Off label use [Unknown]
  - Neoplasm recurrence [Not Recovered/Not Resolved]
  - Neck mass [Not Recovered/Not Resolved]
  - Osteoporosis [Recovering/Resolving]
  - Thyroid mass [Not Recovered/Not Resolved]
  - Weight increased [Not Recovered/Not Resolved]
  - Hyperhidrosis [Not Recovered/Not Resolved]

NARRATIVE: CASE EVENT DATE: 20230801
